FAERS Safety Report 20975332 (Version 1)
Quarter: 2022Q2

REPORT INFORMATION
  Report Type: Spontaneous
  Country: IL (occurrence: None)
  Receive Date: 20220617
  Receipt Date: 20220617
  Transmission Date: 20220721
  Serious: Yes (Death)
  Sender: FDA-Public Use
  Company Number: 2022A223438

PATIENT
  Age: 62 Year

DRUGS (1)
  1. OLAPARIB [Suspect]
     Active Substance: OLAPARIB
     Indication: Prostate cancer metastatic
     Route: 048

REACTIONS (3)
  - Oedema peripheral [Fatal]
  - Cellulitis [Fatal]
  - Pancytopenia [Fatal]
